FAERS Safety Report 8135726-X (Version None)
Quarter: 2012Q1

REPORT INFORMATION
  Report Type: 
  Country: None (occurrence: None)
  Receive Date: 20120214
  Receipt Date: 20120210
  Transmission Date: 20120608
  Serious: Yes (Hospitalization)
  Sender: FDA-Public Use
  Company Number: ZA-ELI_LILLY_AND_COMPANY-ZA201202001064

PATIENT
  Sex: Female

DRUGS (6)
  1. GLUCOPHAGE [Concomitant]
     Indication: DIABETES MELLITUS
     Dosage: 1000 MG, BID
     Route: 048
  2. LEVOTHYROXINE SODIUM [Concomitant]
     Indication: HYPOTHYROIDISM
     Dosage: 1 DF, QD
     Route: 048
  3. PHARMAPRESS [Concomitant]
     Indication: HYPERTENSION
     Dosage: 10 MG, EACH MORNING
     Route: 048
  4. BYETTA [Suspect]
     Indication: DIABETES MELLITUS
     Dosage: 5 UG, UNK
     Route: 058
     Dates: start: 20110501, end: 20110701
  5. DIOTROXIN [Concomitant]
     Indication: HYPOTHYROIDISM
     Dosage: 0.5 DF, QD
     Route: 048
  6. BYETTA [Suspect]
     Dosage: 10 UG, UNK
     Route: 058
     Dates: start: 20110701

REACTIONS (2)
  - CHOLELITHIASIS [None]
  - ABDOMINAL PAIN UPPER [None]
